FAERS Safety Report 13329969 (Version 1)
Quarter: 2017Q1

REPORT INFORMATION
  Report Type: Spontaneous
  Country: US (occurrence: US)
  Receive Date: 20170313
  Receipt Date: 20170313
  Transmission Date: 20170428
  Serious: No
  Sender: FDA-Public Use
  Company Number: US-PFIZER INC-2017099407

PATIENT
  Sex: Female

DRUGS (1)
  1. XELJANZ XR [Suspect]
     Active Substance: TOFACITINIB CITRATE
     Dosage: 11 MG, UNK

REACTIONS (15)
  - Fatigue [Unknown]
  - Back pain [Unknown]
  - Myalgia [Unknown]
  - Arthralgia [Unknown]
  - Swelling [Unknown]
  - Dry mouth [Unknown]
  - Tinnitus [Unknown]
  - Tenderness [Unknown]
  - Hypoaesthesia [Unknown]
  - Synovitis [Unknown]
  - Dyspnoea [Unknown]
  - Sleep disorder [Unknown]
  - Chest pain [Unknown]
  - Headache [Unknown]
  - Abdominal pain [Unknown]
